FAERS Safety Report 9964473 (Version 1)
Quarter: 2014Q1

REPORT INFORMATION
  Report Type: Spontaneous
  Country: NL (occurrence: NL)
  Receive Date: 20140305
  Receipt Date: 20140305
  Transmission Date: 20141002
  Serious: Yes (Life-Threatening, Hospitalization)
  Sender: FDA-Public Use
  Company Number: NL-TEVA-464046ISR

PATIENT
  Age: 78 Year
  Sex: Male

DRUGS (7)
  1. METFORMINE TABLET 850MG [Suspect]
     Indication: DIABETES MELLITUS
     Dosage: EXTRA INFO: HAS RECENTLY BEEN INCREASED FROM 2 TIMES DAILY 1000 MG TO 3 TIMES DAILY 850 MG..
     Route: 048
     Dates: start: 20140210, end: 20140214
  2. LISINOPRIL TABLET 10MG [Concomitant]
     Dosage: 10 MILLIGRAM DAILY;
     Route: 048
  3. SPIRONOLACTON TABLET 25MG [Concomitant]
     Dosage: 25 MILLIGRAM DAILY;
     Route: 048
  4. FURABID CAPSULE MGA 100MG [Concomitant]
     Dosage: 200 MILLIGRAM DAILY; PROLONGED-RELEASE CAPSULE
     Route: 048
     Dates: start: 20140210
  5. GLIMEPIRIDE TABLET 2MG [Concomitant]
     Dosage: 2 MILLIGRAM DAILY;
     Route: 048
  6. XATRAL XR TABLET MVA 10MG [Concomitant]
     Dosage: 10 MILLIGRAM DAILY;
     Route: 048
  7. ESCITALOPRAM TABLET 10MG [Concomitant]
     Dosage: 10 MILLIGRAM DAILY;
     Route: 048

REACTIONS (2)
  - Lactic acidosis [Recovering/Resolving]
  - Renal failure [Unknown]
